FAERS Safety Report 25505839 (Version 1)
Quarter: 2025Q3

REPORT INFORMATION
  Report Type: Spontaneous
  Country: EU (occurrence: EU)
  Receive Date: 20250702
  Receipt Date: 20250702
  Transmission Date: 20251020
  Serious: Yes (Other)
  Sender: COVIS PHARMA GMBH
  Company Number: EU-AMAG-2025COV00729

PATIENT
  Age: 8 Year
  Sex: Male

DRUGS (4)
  1. OMEPRAZOLE [Suspect]
     Active Substance: OMEPRAZOLE
     Indication: Abdominal pain
  2. OMEPRAZOLE [Suspect]
     Active Substance: OMEPRAZOLE
  3. CROMOLYN SODIUM [Concomitant]
     Active Substance: CROMOLYN SODIUM
  4. CETIRIZINE [Concomitant]
     Active Substance: CETIRIZINE HYDROCHLORIDE

REACTIONS (3)
  - Intussusception [Unknown]
  - Hypertrichosis [Recovered/Resolved]
  - Migraine [Unknown]
